FAERS Safety Report 8613432-2 (Version None)
Quarter: 2012Q3

REPORT INFORMATION
  Report Type: 
  Country: None (occurrence: None)
  Receive Date: 20120822
  Receipt Date: 20120807
  Transmission Date: 20120928
  Serious: Yes (Life-Threatening, Hospitalization, Other)
  Sender: FDA-Public Use
  Company Number: BE-MERCK-2011SP001626

PATIENT

DRUGS (20)
  1. SIMVASTATIN [Suspect]
     Indication: HEPATITIS C
     Dosage: 800 MG, TID
     Route: 048
     Dates: start: 20100311, end: 20110107
  2. SIMVASTATIN [Suspect]
     Indication: HEPATITIS C
     Dosage: 800 MG, TID
     Route: 048
     Dates: start: 20100311, end: 20110107
  3. RIBAVIRIN [Suspect]
     Indication: HEPATITIS C
     Dosage: 800 MG, TID
     Route: 048
     Dates: start: 20100311, end: 20110107
  4. NORVIR [Concomitant]
  5. ZOLPIDEM TATRATE [Concomitant]
  6. REYATAZ [Concomitant]
  7. XANAX [Concomitant]
  8. PEG-INTRON [Suspect]
     Indication: HEPATITIS C
     Dosage: 120 MICROGRAMS, QW
     Route: 048
     Dates: start: 20100211, end: 20110106
  9. PLACEBO [Suspect]
     Indication: HEPATITIS C
     Dosage: 800 MG, TID
     Route: 048
     Dates: start: 20100311, end: 20110107
  10. SIMVASTATIN [Suspect]
     Dosage: 800 MG, TID
     Route: 048
     Dates: start: 20100311, end: 20110107
  11. SIMVASTATIN [Suspect]
     Dosage: 800 MG, TID
     Route: 048
     Dates: start: 20100311, end: 20110107
  12. SIMVASTATIN [Suspect]
     Dosage: 800 MG, TID
     Route: 048
     Dates: start: 20100311, end: 20110107
  13. ESCITALOPRAM OXALATE [Concomitant]
  14. EPIVIR [Concomitant]
  15. IMODIUM [Concomitant]
  16. BLINDED BOCEPREVIR [Suspect]
     Indication: HEPATITIS C
     Dosage: 800 MG, TID
     Route: 048
     Dates: start: 20100311, end: 20110107
  17. PEGINTERFERON ALFA-2B [Suspect]
     Indication: HEPATITIS C
     Dosage: 800 MG, TID
     Route: 048
     Dates: start: 20100311, end: 20110107
  18. SIMVASTATIN [Suspect]
     Dosage: 800 MG, TID
     Route: 048
     Dates: start: 20100311, end: 20110107
  19. REBETOL [Suspect]
     Indication: HEPATITIS C
     Dosage: 600 MG, BID
     Route: 048
     Dates: start: 20100211, end: 20110107
  20. INVIRASE [Concomitant]

REACTIONS (4)
  - DEPRESSION [None]
  - PULMONARY EMBOLISM [None]
  - SUICIDE ATTEMPT [None]
  - DEEP VEIN THROMBOSIS [None]
